FAERS Safety Report 6110831-8 (Version None)
Quarter: 2009Q1

REPORT INFORMATION
  Report Type: 
  Country: None (occurrence: None)
  Receive Date: 20090311
  Receipt Date: 20090306
  Transmission Date: 20090719
  Serious: Yes (Death, Hospitalization, Other)
  Sender: FDA-Public Use
  Company Number: US-ELI_LILLY_AND_COMPANY-US200903001316

PATIENT
  Sex: Male
  Weight: 113.38 kg

DRUGS (4)
  1. BYETTA [Suspect]
     Indication: TYPE 2 DIABETES MELLITUS
     Dosage: 5 UG, 2/D
     Route: 058
     Dates: start: 20081101
  2. METFORMIN HCL [Concomitant]
  3. STARLIX [Concomitant]
  4. JANUVIA [Concomitant]

REACTIONS (6)
  - ABDOMINAL PAIN [None]
  - DEATH [None]
  - HYPOTENSION [None]
  - NAUSEA [None]
  - PANCREATITIS [None]
  - VOMITING [None]
